FAERS Safety Report 25277170 (Version 2)
Quarter: 2025Q2

REPORT INFORMATION
  Report Type: Spontaneous
  Country: ES (occurrence: ES)
  Receive Date: 20250507
  Receipt Date: 20250620
  Transmission Date: 20250717
  Serious: Yes (Other)
  Sender: TEVA
  Company Number: ES-TEVA-VS-3327291

PATIENT
  Age: 80 Year
  Sex: Female

DRUGS (3)
  1. ZOLPIDEM [Suspect]
     Active Substance: ZOLPIDEM TARTRATE
     Indication: Hypertension
     Route: 065
     Dates: start: 20250414, end: 202504
  2. LORAZEPAM [Concomitant]
     Active Substance: LORAZEPAM
     Indication: Sleep disorder
     Dosage: (0-0-2)
     Route: 065
  3. ESOMEPRAZOLE [Concomitant]
     Active Substance: ESOMEPRAZOLE
     Indication: Product used for unknown indication
     Route: 065

REACTIONS (16)
  - Malaise [Recovering/Resolving]
  - Dry mouth [Recovering/Resolving]
  - Dysphagia [Recovering/Resolving]
  - Hypoaesthesia oral [Recovering/Resolving]
  - Dyspnoea [Recovering/Resolving]
  - Swelling [Recovering/Resolving]
  - Pancreatic cyst [Unknown]
  - Blood pressure decreased [Recovering/Resolving]
  - Cyst [Unknown]
  - Oesophageal pain [Recovering/Resolving]
  - Tongue discomfort [Recovering/Resolving]
  - Hiatus hernia [Unknown]
  - Hyperchlorhydria [Recovering/Resolving]
  - Paralysis [Recovering/Resolving]
  - Cerebrovascular accident [Recovering/Resolving]
  - Throat tightness [Recovering/Resolving]

NARRATIVE: CASE EVENT DATE: 20250101
